FAERS Safety Report 10119913 (Version 1)
Quarter: 2014Q2

REPORT INFORMATION
  Report Type: Spontaneous
  Country: BR (occurrence: BR)
  Receive Date: 20140426
  Receipt Date: 20140426
  Transmission Date: 20141212
  Serious: Yes (Other)
  Sender: FDA-Public Use
  Company Number: PHHY2014BR050307

PATIENT
  Sex: Female

DRUGS (1)
  1. GILENYA [Suspect]
     Route: 048

REACTIONS (3)
  - Spider vein [Unknown]
  - Alopecia [Unknown]
  - Vision blurred [Unknown]
